FAERS Safety Report 23895228 (Version 1)
Quarter: 2024Q2

REPORT INFORMATION
  Report Type: Other
  Country: CO (occurrence: None)
  Receive Date: 20240524
  Receipt Date: 20240524
  Transmission Date: 20240716
  Serious: No
  Sender: FDA-Public Use
  Company Number: CO-ROCHE-3569516

PATIENT
  Age: 55 Year
  Sex: Female
  Weight: 57 kg

DRUGS (4)
  1. OCREVUS [Suspect]
     Active Substance: OCRELIZUMAB
     Indication: Primary progressive multiple sclerosis
     Route: 042
     Dates: start: 2020
  2. CALCITRIOL [Concomitant]
     Active Substance: CALCITRIOL
  3. PREGABALIN [Concomitant]
     Active Substance: PREGABALIN
  4. CALTRATE [Concomitant]
     Active Substance: CALCIUM CARBONATE

REACTIONS (1)
  - Tuberculin test positive [Unknown]

NARRATIVE: CASE EVENT DATE: 20231201
